APPROVED DRUG PRODUCT: CHLORDIAZACHEL
Active Ingredient: CHLORDIAZEPOXIDE HYDROCHLORIDE
Strength: 10MG
Dosage Form/Route: CAPSULE;ORAL
Application: A084639 | Product #001
Applicant: RACHELLE LABORATORIES INC
Approved: Approved Prior to Jan 1, 1982 | RLD: No | RS: No | Type: DISCN